FAERS Safety Report 7756602-8 (Version None)
Quarter: 2011Q3

REPORT INFORMATION
  Report Type: 
  Country: None (occurrence: None)
  Receive Date: 20110916
  Receipt Date: 20110913
  Transmission Date: 20111222
  Serious: Yes (Other)
  Sender: FDA-Public Use
  Company Number: PHHY2011AU81431

PATIENT

DRUGS (4)
  1. ISONIAZID [Suspect]
  2. QUETIAPINE [Concomitant]
  3. CLOZAPINE [Suspect]
     Dosage: 500 MG, DAILY
  4. RIFAMPICIN [Suspect]

REACTIONS (6)
  - TUBERCULOSIS [None]
  - NEUTROPENIA [None]
  - LEUKOPENIA [None]
  - NEUROLEPTIC MALIGNANT SYNDROME [None]
  - SCHIZOPHRENIA [None]
  - CATATONIA [None]
